FAERS Safety Report 24736230 (Version 1)
Quarter: 2024Q4

REPORT INFORMATION
  Report Type: Spontaneous
  Country: DE (occurrence: DE)
  Receive Date: 20241216
  Receipt Date: 20241216
  Transmission Date: 20250115
  Serious: Yes (Other)
  Sender: CIPLA
  Company Number: DE-ELI_LILLY_AND_COMPANY-DE202207006299

PATIENT

DRUGS (155)
  1. FLUTICASONE PROPIONATE\SALMETEROL XINAFOATE [Suspect]
     Active Substance: FLUTICASONE PROPIONATE\SALMETEROL XINAFOATE
     Indication: Pneumothorax
     Dosage: UNK
     Dates: end: 2018
  2. FLUTICASONE PROPIONATE\SALMETEROL XINAFOATE [Suspect]
     Active Substance: FLUTICASONE PROPIONATE\SALMETEROL XINAFOATE
     Indication: Nasopharyngitis
  3. FLUTICASONE PROPIONATE\SALMETEROL XINAFOATE [Suspect]
     Active Substance: FLUTICASONE PROPIONATE\SALMETEROL XINAFOATE
     Indication: Dysphonia
  4. FLUTICASONE PROPIONATE\SALMETEROL XINAFOATE [Suspect]
     Active Substance: FLUTICASONE PROPIONATE\SALMETEROL XINAFOATE
     Indication: Secretion discharge
  5. FLUTICASONE PROPIONATE\SALMETEROL XINAFOATE [Suspect]
     Active Substance: FLUTICASONE PROPIONATE\SALMETEROL XINAFOATE
     Indication: Dyspnoea
  6. FLUTICASONE PROPIONATE\SALMETEROL XINAFOATE [Suspect]
     Active Substance: FLUTICASONE PROPIONATE\SALMETEROL XINAFOATE
     Indication: Secretion discharge
  7. FLUTICASONE PROPIONATE\SALMETEROL XINAFOATE [Suspect]
     Active Substance: FLUTICASONE PROPIONATE\SALMETEROL XINAFOATE
     Indication: Pneumothorax
  8. RIVAROXABAN [Suspect]
     Active Substance: RIVAROXABAN
     Indication: Product used for unknown indication
     Dosage: UNK
     Route: 065
  9. MOMETASONE FUROATE [Suspect]
     Active Substance: MOMETASONE FUROATE
     Indication: Product used for unknown indication
     Dosage: 2 DOSAGE FORM, BID (2 PUFF(S), BID 1-0-1)
     Route: 065
  10. MOMETASONE FUROATE [Suspect]
     Active Substance: MOMETASONE FUROATE
     Dosage: 2 DOSAGE FORM, BID (2 PUFF(S), BID 1-0-1)
     Route: 065
  11. MOMETASONE FUROATE [Suspect]
     Active Substance: MOMETASONE FUROATE
     Dosage: 2 DOSAGE FORM, DAILY(1 IN 0.5 DAY)
     Route: 065
  12. DICLOFENAC DIETHYLAMINE [Suspect]
     Active Substance: DICLOFENAC DIETHYLAMINE
     Indication: Product used for unknown indication
     Dosage: UNK
     Route: 065
  13. CIALIS [Suspect]
     Active Substance: TADALAFIL
     Indication: Product used for unknown indication
     Dosage: UNK UNK, UNKNOWN
     Route: 065
  14. MAGNESIUM ASPARTATE\POTASSIUM ASPARTATE [Suspect]
     Active Substance: MAGNESIUM ASPARTATE\POTASSIUM ASPARTATE
     Indication: Product used for unknown indication
     Dosage: UNK UNK, UNKNOWN
     Route: 065
  15. DIETARY SUPPLEMENT [Suspect]
     Active Substance: DIETARY SUPPLEMENT
     Indication: Product used for unknown indication
     Dosage: UNK UNK, UNKNOWN (2-0-1) TID
     Route: 065
  16. HERBALS [Suspect]
     Active Substance: HERBALS
     Indication: Product used for unknown indication
     Dosage: UNK
     Route: 065
  17. HERBALS\PHENYL SALICYLATE [Suspect]
     Active Substance: HERBALS\PHENYL SALICYLATE
     Indication: Asthma
     Dosage: 10 GTT DROPS, QD
     Route: 065
  18. HERBALS\PHENYL SALICYLATE [Suspect]
     Active Substance: HERBALS\PHENYL SALICYLATE
     Indication: Bronchitis
  19. CLOPIDOGREL [Suspect]
     Active Substance: CLOPIDOGREL BISULFATE
     Indication: Product used for unknown indication
     Dosage: UNK UNK, DAILY  BID (1-0-1)
     Route: 065
     Dates: start: 20201210
  20. ALBUTEROL [Suspect]
     Active Substance: ALBUTEROL
     Indication: Secretion discharge
     Dosage: UNK UNK, UNKNOWN
     Route: 065
     Dates: start: 2018, end: 2018
  21. ERGOCALCIFEROL [Suspect]
     Active Substance: ERGOCALCIFEROL
     Indication: Product used for unknown indication
     Dosage: 20000 INTERNATIONAL UNIT, WEEKLY (1/W)
     Route: 065
  22. ERGOCALCIFEROL [Suspect]
     Active Substance: ERGOCALCIFEROL
     Indication: Product used for unknown indication
     Dosage: 20000 INTERNATIONAL UNIT, WEEKLY (1/W)
     Route: 065
  23. ROSUVASTATIN CALCIUM [Suspect]
     Active Substance: ROSUVASTATIN CALCIUM
     Indication: Product used for unknown indication
     Dosage: UNK
     Route: 065
  24. XARELTO [Suspect]
     Active Substance: RIVAROXABAN
     Indication: Product used for unknown indication
     Dosage: UNK
     Route: 065
  25. PRALUENT [Suspect]
     Active Substance: ALIROCUMAB
     Indication: Product used for unknown indication
     Dosage: UNK, UNKNOWN, 75 UNK
     Route: 065
  26. PRALUENT [Suspect]
     Active Substance: ALIROCUMAB
     Dosage: UNK UNK, UNKNOWN 75 UNK
     Route: 065
  27. MAGNESIUM OROTATE [Suspect]
     Active Substance: MAGNESIUM OROTATE
     Indication: Product used for unknown indication
     Dosage: UNK, UNKNOWN (3-2-3)
     Route: 065
  28. AMBROXOL HYDROCHLORIDE [Suspect]
     Active Substance: AMBROXOL HYDROCHLORIDE
     Indication: Product used for unknown indication
     Dosage: UNK, UNKNOWN
     Route: 065
  29. COLESEVELAM HYDROCHLORIDE [Suspect]
     Active Substance: COLESEVELAM HYDROCHLORIDE
     Indication: Product used for unknown indication
     Dosage: UNK UNK, UNKNOWN FREQ.
     Route: 065
  30. IBUPROFEN [Suspect]
     Active Substance: IBUPROFEN
     Indication: Product used for unknown indication
     Dosage: UNK, AS NEEDED PRN
     Route: 065
  31. IBUPROFEN [Suspect]
     Active Substance: IBUPROFEN
     Dosage: UNK UNK, AS NEEDED (PRN)
     Route: 065
  32. ATROVENT [Suspect]
     Active Substance: IPRATROPIUM BROMIDE
     Indication: Dysphonia
     Dosage: UNK
     Route: 065
     Dates: start: 2018, end: 2018
  33. ATROVENT [Suspect]
     Active Substance: IPRATROPIUM BROMIDE
     Indication: Nasopharyngitis
  34. ATROVENT [Suspect]
     Active Substance: IPRATROPIUM BROMIDE
     Indication: Dyspnoea
  35. ATROVENT [Suspect]
     Active Substance: IPRATROPIUM BROMIDE
     Indication: Cough
  36. ATROVENT [Suspect]
     Active Substance: IPRATROPIUM BROMIDE
     Indication: Secretion discharge
  37. ATROVENT [Suspect]
     Active Substance: IPRATROPIUM BROMIDE
     Indication: Pneumothorax
  38. ATROVENT [Suspect]
     Active Substance: IPRATROPIUM BROMIDE
     Indication: Chest discomfort
  39. ATROVENT [Suspect]
     Active Substance: IPRATROPIUM BROMIDE
     Indication: Pneumothorax
  40. ATROVENT [Suspect]
     Active Substance: IPRATROPIUM BROMIDE
     Indication: Secretion discharge
  41. ATROVENT [Suspect]
     Active Substance: IPRATROPIUM BROMIDE
     Indication: Nasopharyngitis
  42. ATROVENT [Suspect]
     Active Substance: IPRATROPIUM BROMIDE
     Indication: Secretion discharge
  43. ATROVENT [Suspect]
     Active Substance: IPRATROPIUM BROMIDE
     Indication: Nasopharyngitis
  44. ATROVENT [Suspect]
     Active Substance: IPRATROPIUM BROMIDE
     Indication: Pneumothorax
  45. ATROVENT [Suspect]
     Active Substance: IPRATROPIUM BROMIDE
     Indication: Secretion discharge
  46. TAMSULOSIN [Suspect]
     Active Substance: TAMSULOSIN
     Indication: Product used for unknown indication
     Dosage: UNK UNK, UNKNOWN
     Route: 065
  47. .ALPHA.-TOCOPHEROL ACETATE [Suspect]
     Active Substance: .ALPHA.-TOCOPHEROL ACETATE
     Indication: Product used for unknown indication
     Dosage: 2000 IU, QW
     Route: 065
  48. .ALPHA.-TOCOPHEROL ACETATE [Suspect]
     Active Substance: .ALPHA.-TOCOPHEROL ACETATE
     Dosage: 1 DF, QW
     Route: 065
  49. SOAP [Suspect]
     Active Substance: SOAP
     Indication: Bronchitis
     Dosage: TID, CUTANEOUS EMULSION
     Route: 065
  50. SOAP [Suspect]
     Active Substance: SOAP
     Indication: Dysphonia
     Dosage: UNK, Q3W
     Route: 065
  51. SOAP [Suspect]
     Active Substance: SOAP
     Indication: Asthma
     Dosage: TID CUTANEOUS EMULSION
     Route: 065
  52. SOAP [Suspect]
     Active Substance: SOAP
     Indication: Cough
     Dosage: 10 GTT DROPS, QD
     Route: 065
  53. SOAP [Suspect]
     Active Substance: SOAP
     Indication: Nasopharyngitis
     Dosage: UNK, QD
     Route: 065
  54. SOAP [Suspect]
     Active Substance: SOAP
     Indication: Secretion discharge
     Dosage: CUTANEOUS EMULSION
     Route: 065
  55. SOAP [Suspect]
     Active Substance: SOAP
     Indication: Pneumothorax
     Dosage: 10 GTT DROPS, QD
     Route: 065
  56. SOAP [Suspect]
     Active Substance: SOAP
     Indication: Dyspnoea
     Dosage: TIDCUTANEOUS EMULSION
     Route: 065
  57. SOAP [Suspect]
     Active Substance: SOAP
     Indication: Product used for unknown indication
     Dosage: Q3W
     Route: 065
  58. SOAP [Suspect]
     Active Substance: SOAP
     Indication: Nasopharyngitis
     Dosage: CUTANEOUS EMULSION
     Route: 065
  59. SOAP [Suspect]
     Active Substance: SOAP
     Dosage: QD
     Route: 065
  60. SOAP [Suspect]
     Active Substance: SOAP
     Dosage: UNK
     Route: 065
  61. ACETIC ACID\DELTAMETHRIN [Suspect]
     Active Substance: ACETIC ACID\DELTAMETHRIN
     Indication: Product used for unknown indication
     Dosage: 2000 INTERNATIONAL UNIT, BID
     Route: 065
  62. ACETIC ACID\DELTAMETHRIN [Suspect]
     Active Substance: ACETIC ACID\DELTAMETHRIN
     Dosage: 500 IU, Q12HUNK UNK, UNKNOWN (STRENGTH 10)
     Route: 065
  63. ACETIC ACID\DELTAMETHRIN [Suspect]
     Active Substance: ACETIC ACID\DELTAMETHRIN
     Dosage: 500 IU, Q12HUNK UNK, UNKNOWN (STRENGTH 10)
  64. ACETIC ACID\DELTAMETHRIN [Suspect]
     Active Substance: ACETIC ACID\DELTAMETHRIN
     Dosage: 1000 INTERNATIONAL UNIT, BID
     Route: 065
  65. BIOTIN [Suspect]
     Active Substance: BIOTIN
     Indication: Product used for unknown indication
     Dosage: 1 DF, QD
     Route: 065
  66. ASPIRIN [Suspect]
     Active Substance: ASPIRIN
     Indication: Product used for unknown indication
     Dosage: STRENGTH: 100 MG
     Route: 065
  67. FLUTICASONE PROPIONATE\SALMETEROL XINAFOATE [Suspect]
     Active Substance: FLUTICASONE PROPIONATE\SALMETEROL XINAFOATE
     Indication: Dysphonia
     Dosage: UNK, UNKNOWN
     Route: 065
     Dates: start: 2018, end: 2018
  68. FLUTICASONE PROPIONATE\SALMETEROL XINAFOATE [Suspect]
     Active Substance: FLUTICASONE PROPIONATE\SALMETEROL XINAFOATE
     Indication: Secretion discharge
  69. FLUTICASONE PROPIONATE\SALMETEROL XINAFOATE [Suspect]
     Active Substance: FLUTICASONE PROPIONATE\SALMETEROL XINAFOATE
     Indication: Pneumothorax
  70. FLUTICASONE PROPIONATE\SALMETEROL XINAFOATE [Suspect]
     Active Substance: FLUTICASONE PROPIONATE\SALMETEROL XINAFOATE
     Indication: Nasopharyngitis
  71. FLUTICASONE PROPIONATE\SALMETEROL XINAFOATE [Suspect]
     Active Substance: FLUTICASONE PROPIONATE\SALMETEROL XINAFOATE
     Indication: Cough
  72. FLUTICASONE PROPIONATE\SALMETEROL XINAFOATE [Suspect]
     Active Substance: FLUTICASONE PROPIONATE\SALMETEROL XINAFOATE
     Indication: Pneumothorax
  73. FLUTICASONE PROPIONATE\SALMETEROL XINAFOATE [Suspect]
     Active Substance: FLUTICASONE PROPIONATE\SALMETEROL XINAFOATE
     Indication: Dyspnoea
  74. FLUTICASONE PROPIONATE\SALMETEROL XINAFOATE [Suspect]
     Active Substance: FLUTICASONE PROPIONATE\SALMETEROL XINAFOATE
     Indication: Product used for unknown indication
  75. FLUTICASONE PROPIONATE\SALMETEROL XINAFOATE [Suspect]
     Active Substance: FLUTICASONE PROPIONATE\SALMETEROL XINAFOATE
     Indication: Secretion discharge
  76. CALCIUM CARBONATE [Suspect]
     Active Substance: CALCIUM CARBONATE
     Indication: Product used for unknown indication
     Dosage: 1000 MILLIGRAM UNK UNK, UNKNOWN FREQ. (UNK (1 IN 1.5 DAY UNK, CALCIUM HEXAL (CALCIUM CARBONATE))
     Route: 065
  77. CALCIUM CARBONATE [Suspect]
     Active Substance: CALCIUM CARBONATE
     Indication: Product used for unknown indication
     Dosage: 500 MILLIGRAM, BID
     Route: 065
  78. CALCIUM CARBONATE [Suspect]
     Active Substance: CALCIUM CARBONATE
     Dosage: 1000 MILLIGRAM
     Route: 065
  79. CALCIUM CARBONATE [Suspect]
     Active Substance: CALCIUM CARBONATE
     Dosage: 1000 MILLIGRAM, QD (UNK ,500 MG BID(1 IN 1.5 DAY UNK, CALCIUM HEXAL (CALCIUM CARBONATE))
     Route: 065
  80. IBUPROFEN [Suspect]
     Active Substance: IBUPROFEN
     Indication: Product used for unknown indication
     Dosage: UNK UNK, PRN
     Route: 065
  81. MAGNESIUM ASPARTATE\POTASSIUM ASPARTATE [Suspect]
     Active Substance: MAGNESIUM ASPARTATE\POTASSIUM ASPARTATE
     Indication: Product used for unknown indication
     Dosage: UNK
     Route: 065
  82. MAGNESIUM ASPARTATE\POTASSIUM ASPARTATE [Suspect]
     Active Substance: MAGNESIUM ASPARTATE\POTASSIUM ASPARTATE
     Dosage: UNK
     Route: 065
  83. MAGNESIUM OROTATE [Suspect]
     Active Substance: MAGNESIUM OROTATE
     Indication: Product used for unknown indication
     Dosage: UNK, DAILY (TID (3-2-3))
     Route: 065
  84. MAGNESIUM OROTATE [Suspect]
     Active Substance: MAGNESIUM OROTATE
     Dosage: UNK UNK, DAILY (TID (3-2-3))
     Route: 065
  85. DICLOFENAC EPOLAMINE [Suspect]
     Active Substance: DICLOFENAC EPOLAMINE
     Indication: Product used for unknown indication
     Dosage: UNK
     Route: 055
  86. CALCIUM [Suspect]
     Active Substance: CALCIUM
     Indication: Product used for unknown indication
     Dosage: UNK UNK, UNKNOWN BID (STRENGTH: 500) BID (1-0-1)
     Route: 065
  87. CALCIUM [Suspect]
     Active Substance: CALCIUM
     Dosage: UNK UNK, UNKNOWN BID (STRENGTH: 500) BID (1-0-1)
     Route: 065
  88. MOMETASONE [Suspect]
     Active Substance: MOMETASONE
     Indication: Product used for unknown indication
     Dosage: AS NEEDED
     Route: 065
  89. GINKGO [Suspect]
     Active Substance: GINKGO
     Indication: Product used for unknown indication
     Dosage: UNK, STRENGTH: 500) BID (1-0-1)BID
     Route: 065
  90. GINKGO [Suspect]
     Active Substance: GINKGO
     Dosage: UNK, STRENGTH: 500) BID (1-0-1)BID
     Route: 065
  91. BISOPROLOL [Suspect]
     Active Substance: BISOPROLOL
     Indication: Product used for unknown indication
     Dosage: 1 DOSAGE FORM
     Route: 055
     Dates: start: 2018, end: 20201210
  92. BISOPROLOL [Suspect]
     Active Substance: BISOPROLOL
     Dosage: 1 DOSAGE FORM, DAILY QD (1-0-0)
     Route: 055
     Dates: start: 20201210
  93. CALCIUM PANTOTHENATE [Suspect]
     Active Substance: CALCIUM PANTOTHENATE
     Indication: Product used for unknown indication
     Dosage: UNK UNK, EVERY 8 HRS
     Route: 065
  94. MOMETASONE FUROATE [Suspect]
     Active Substance: MOMETASONE FUROATE
     Indication: Product used for unknown indication
     Dosage: 2 DOSAGE FORM, BID (2 PUFFS)
     Route: 065
  95. MOMETASONE FUROATE [Suspect]
     Active Substance: MOMETASONE FUROATE
     Dosage: 2 PUFFS BID
     Route: 065
  96. OLMESARTAN MEDOXOMIL [Suspect]
     Active Substance: OLMESARTAN MEDOXOMIL
     Indication: Product used for unknown indication
     Dosage: UNK
     Route: 065
  97. TADALAFIL [Suspect]
     Active Substance: TADALAFIL
     Indication: Product used for unknown indication
     Dosage: UNK
     Route: 065
  98. TOCOPHEROL ACETATE [Suspect]
     Active Substance: .ALPHA.-TOCOPHEROL ACETATE
     Indication: Product used for unknown indication
     Dosage: 20000 [IU] (IU(1000))
     Route: 065
  99. VITAMIN E [Suspect]
     Active Substance: .ALPHA.-TOCOPHEROL
     Indication: Product used for unknown indication
     Dosage: UNK UNK, UNKNOWN Q2W20000 UNK, QW
     Route: 065
  100. VITAMIN E [Suspect]
     Active Substance: .ALPHA.-TOCOPHEROL
     Dosage: UNK UNK, UNKNOWN Q2W20000 UNK, QW
     Route: 065
  101. ASPIRIN [Suspect]
     Active Substance: ASPIRIN
     Indication: Product used for unknown indication
     Dosage: UNK UNK, UNKNOWN (STRENGTH: 100)
     Route: 065
  102. ASPIRIN CALCIUM [Suspect]
     Active Substance: ASPIRIN CALCIUM
     Indication: Product used for unknown indication
     Dosage: UNK, STRENGTH: 500) BID (1-0-1)
     Route: 065
  103. ASPIRIN CALCIUM [Suspect]
     Active Substance: ASPIRIN CALCIUM
     Indication: Product used for unknown indication
  104. COLESEVELAM [Suspect]
     Active Substance: COLESEVELAM
     Indication: Product used for unknown indication
     Dosage: UNK
     Route: 065
  105. MAGNESIUM ASPARTATE [Suspect]
     Active Substance: MAGNESIUM ASPARTATE
     Indication: Product used for unknown indication
     Dosage: UNK UNK, TWICE DAILY STRENGTH: 500) BID (1-0-1)
     Route: 065
  106. MAGNESIUM ASPARTATE [Suspect]
     Active Substance: MAGNESIUM ASPARTATE
     Dosage: UNK UNK, BID (STRENGTH 500)
     Route: 065
  107. ALBUTEROL SULFATE [Suspect]
     Active Substance: ALBUTEROL SULFATE
     Indication: Productive cough
     Dosage: UNK UNK, UNKNOWN, INHLAED VIA SPACER WITH PAEDIATRIC MASK
     Route: 065
     Dates: start: 2018, end: 2018
  108. ALBUTEROL SULFATE [Suspect]
     Active Substance: ALBUTEROL SULFATE
     Indication: Dysphonia
  109. ALBUTEROL SULFATE [Suspect]
     Active Substance: ALBUTEROL SULFATE
     Indication: Pneumothorax
  110. ALBUTEROL SULFATE [Suspect]
     Active Substance: ALBUTEROL SULFATE
     Indication: Chest discomfort
  111. ALBUTEROL SULFATE [Suspect]
     Active Substance: ALBUTEROL SULFATE
     Indication: Cough
  112. ALBUTEROL SULFATE [Suspect]
     Active Substance: ALBUTEROL SULFATE
     Indication: Secretion discharge
  113. ALBUTEROL SULFATE [Suspect]
     Active Substance: ALBUTEROL SULFATE
     Indication: Dyspnoea
  114. ALBUTEROL SULFATE [Suspect]
     Active Substance: ALBUTEROL SULFATE
     Indication: Secretion discharge
  115. ALBUTEROL SULFATE [Suspect]
     Active Substance: ALBUTEROL SULFATE
     Indication: Nasopharyngitis
  116. ALBUTEROL SULFATE [Suspect]
     Active Substance: ALBUTEROL SULFATE
     Indication: Pneumothorax
  117. ALBUTEROL SULFATE [Suspect]
     Active Substance: ALBUTEROL SULFATE
     Indication: Pneumothorax
  118. GINKGO [Suspect]
     Active Substance: GINKGO
     Indication: Product used for unknown indication
     Dosage: UNK, BID
     Route: 065
  119. CLOPIDOGREL BISULFATE [Suspect]
     Active Substance: CLOPIDOGREL BISULFATE
     Indication: Product used for unknown indication
     Dosage: UNK
     Route: 065
  120. CLOPIDOGREL BISULFATE [Suspect]
     Active Substance: CLOPIDOGREL BISULFATE
     Dosage: UNK
     Route: 065
  121. .ALPHA.-TOCOPHEROL ACETATE, DL- [Suspect]
     Active Substance: .ALPHA.-TOCOPHEROL ACETATE, DL-
     Indication: Product used for unknown indication
     Dosage: 1 DOSAGE FORM, QW
     Route: 065
  122. PANTOTHENIC ACID [Suspect]
     Active Substance: PANTOTHENIC ACID
     Indication: Product used for unknown indication
     Dosage: UNK
     Dates: start: 2018
  123. .ALPHA.-TOCOPHEROL ACETATE [Suspect]
     Active Substance: .ALPHA.-TOCOPHEROL ACETATE
     Indication: Product used for unknown indication
     Dosage: 1 DOSAGE FORM, QW
     Route: 065
  124. .ALPHA.-TOCOPHEROL ACETATE [Suspect]
     Active Substance: .ALPHA.-TOCOPHEROL ACETATE
     Dosage: 2000 IU, QW
     Route: 065
  125. MAGNESIUM GLUCONATE [Suspect]
     Active Substance: MAGNESIUM GLUCONATE
     Indication: Product used for unknown indication
     Dosage: UNK
     Route: 065
  126. FLUTICASONE PROPIONATE\SALMETEROL XINAFOATE [Suspect]
     Active Substance: FLUTICASONE PROPIONATE\SALMETEROL XINAFOATE
     Indication: Nasopharyngitis
     Dosage: UNK
     Dates: end: 2018
  127. FLUTICASONE PROPIONATE\SALMETEROL XINAFOATE [Suspect]
     Active Substance: FLUTICASONE PROPIONATE\SALMETEROL XINAFOATE
     Indication: Dyspnoea
  128. FLUTICASONE PROPIONATE\SALMETEROL XINAFOATE [Suspect]
     Active Substance: FLUTICASONE PROPIONATE\SALMETEROL XINAFOATE
     Indication: Pneumothorax
  129. FLUTICASONE PROPIONATE\SALMETEROL XINAFOATE [Suspect]
     Active Substance: FLUTICASONE PROPIONATE\SALMETEROL XINAFOATE
     Indication: Dysphonia
  130. FLUTICASONE PROPIONATE\SALMETEROL XINAFOATE [Suspect]
     Active Substance: FLUTICASONE PROPIONATE\SALMETEROL XINAFOATE
     Indication: Secretion discharge
  131. FLUTICASONE PROPIONATE\SALMETEROL XINAFOATE [Suspect]
     Active Substance: FLUTICASONE PROPIONATE\SALMETEROL XINAFOATE
     Indication: Pneumothorax
  132. FLUTICASONE PROPIONATE\SALMETEROL XINAFOATE [Suspect]
     Active Substance: FLUTICASONE PROPIONATE\SALMETEROL XINAFOATE
     Indication: Secretion discharge
  133. DIETARY SUPPLEMENT [Suspect]
     Active Substance: DIETARY SUPPLEMENT
     Indication: Product use in unapproved indication
     Dosage: UNK UNK, UNKNOWN (2-0-1) TID
     Route: 065
  134. PREDNISOLONE [Concomitant]
     Active Substance: PREDNISOLONE
     Indication: Product used for unknown indication
     Dosage: UNK, OTHER FOR 6 DAYS
     Route: 065
  135. PREDNISOLONE [Concomitant]
     Active Substance: PREDNISOLONE
     Dosage: UNK UNK, OTHER (FOR 6 DAYS)
     Route: 065
  136. CALCIUM CARBONATE [Concomitant]
     Active Substance: CALCIUM CARBONATE
     Indication: Product used for unknown indication
     Dosage: UNK
     Route: 065
  137. CALCIUM CARBONATE [Concomitant]
     Active Substance: CALCIUM CARBONATE
     Dosage: UNK
     Route: 065
  138. AMBROXOL HYDROCHLORIDE [Concomitant]
     Active Substance: AMBROXOL HYDROCHLORIDE
     Indication: Product used for unknown indication
     Dosage: UNK
     Route: 065
  139. REPATHA [Concomitant]
     Active Substance: EVOLOCUMAB
     Indication: Product used for unknown indication
     Dosage: 1 IN 1 WEEK
     Route: 065
  140. REPATHA [Concomitant]
     Active Substance: EVOLOCUMAB
     Indication: Product used for unknown indication
     Dosage: 1 DF, QW
     Route: 065
  141. REPATHA [Concomitant]
     Active Substance: EVOLOCUMAB
     Dosage: 1 IN 56 HOUR
     Route: 065
  142. REPATHA [Concomitant]
     Active Substance: EVOLOCUMAB
     Dosage: 1 DOSAGE FORM, WEEKLY (1/W) 1 DF, QW
     Route: 065
  143. OLMESARTAN MEDOXOMIL [Concomitant]
     Active Substance: OLMESARTAN MEDOXOMIL
     Indication: Product used for unknown indication
     Dosage: UNK
     Route: 065
  144. OLMESARTAN MEDOXOMIL [Concomitant]
     Active Substance: OLMESARTAN MEDOXOMIL
     Dosage: 1000 IU
  145. OLMESARTAN MEDOXOMIL [Concomitant]
     Active Substance: OLMESARTAN MEDOXOMIL
     Indication: Product used for unknown indication
     Dosage: UNK
     Route: 065
  146. OLMESARTAN MEDOXOMIL [Concomitant]
     Active Substance: OLMESARTAN MEDOXOMIL
     Dosage: 500 IU, Q12H
     Route: 065
  147. EVOLOCUMAB [Concomitant]
     Active Substance: EVOLOCUMAB
     Indication: Product used for unknown indication
     Dosage: UNK, QW3
     Route: 065
  148. FLUTICASONE PROPIONATE\SALMETEROL XINAFOATE [Concomitant]
     Active Substance: FLUTICASONE PROPIONATE\SALMETEROL XINAFOATE
     Indication: Dysphonia
     Dosage: UNK
     Route: 065
     Dates: start: 2018, end: 2018
  149. FLUTICASONE PROPIONATE\SALMETEROL XINAFOATE [Concomitant]
     Active Substance: FLUTICASONE PROPIONATE\SALMETEROL XINAFOATE
     Indication: Cough
  150. FLUTICASONE PROPIONATE\SALMETEROL XINAFOATE [Concomitant]
     Active Substance: FLUTICASONE PROPIONATE\SALMETEROL XINAFOATE
     Indication: Secretion discharge
  151. FLUTICASONE PROPIONATE\SALMETEROL XINAFOATE [Concomitant]
     Active Substance: FLUTICASONE PROPIONATE\SALMETEROL XINAFOATE
     Indication: Dyspnoea
  152. FLUTICASONE PROPIONATE\SALMETEROL XINAFOATE [Concomitant]
     Active Substance: FLUTICASONE PROPIONATE\SALMETEROL XINAFOATE
     Indication: Pneumothorax
  153. FLUTICASONE PROPIONATE\SALMETEROL XINAFOATE [Concomitant]
     Active Substance: FLUTICASONE PROPIONATE\SALMETEROL XINAFOATE
     Indication: Nasopharyngitis
  154. PEPPERMINT OIL [Concomitant]
     Active Substance: PEPPERMINT OIL
     Indication: Product used for unknown indication
     Dosage: UNK
     Route: 065
  155. EUCALYPTUS OIL [Concomitant]
     Active Substance: EUCALYPTUS OIL
     Indication: Product used for unknown indication
     Dosage: UNK
     Route: 065

REACTIONS (24)
  - Obstructive airways disorder [Unknown]
  - Exostosis [Unknown]
  - Muscle spasms [Unknown]
  - Secretion discharge [Unknown]
  - Dysphonia [Not Recovered/Not Resolved]
  - Brain natriuretic peptide increased [Unknown]
  - Coronary artery disease [Unknown]
  - Sensation of foreign body [Unknown]
  - Obstructive sleep apnoea syndrome [Unknown]
  - Eosinophilia [Unknown]
  - Myoglobin blood increased [Unknown]
  - Fractional exhaled nitric oxide increased [Recovered/Resolved]
  - Chest discomfort [Not Recovered/Not Resolved]
  - Dyspnoea exertional [Unknown]
  - Pneumothorax [Not Recovered/Not Resolved]
  - Plantar fasciitis [Unknown]
  - Cough [Not Recovered/Not Resolved]
  - Cardiac disorder [Unknown]
  - Nasopharyngitis [Unknown]
  - Atrial fibrillation [Recovered/Resolved]
  - Wheezing [Unknown]
  - Dyspnoea [Unknown]
  - Increased upper airway secretion [Unknown]
  - Bronchospasm [Unknown]

NARRATIVE: CASE EVENT DATE: 20180101
